FAERS Safety Report 15432706 (Version 1)
Quarter: 2018Q3

REPORT INFORMATION
  Report Type: Spontaneous
  Country: CA (occurrence: CA)
  Receive Date: 20180927
  Receipt Date: 20180927
  Transmission Date: 20181010
  Serious: Yes (Other)
  Sender: FDA-Public Use
  Company Number: CA-AMGEN-CANSP2018131289

PATIENT
  Age: 62 Year
  Sex: Female
  Weight: 49.89 kg

DRUGS (2)
  1. PROLIA [Suspect]
     Active Substance: DENOSUMAB
     Indication: OSTEOPOROSIS
     Dosage: 60 MG/ML, QMO
     Route: 058
  2. PREVACID [Concomitant]
     Active Substance: LANSOPRAZOLE
     Dosage: UNK

REACTIONS (11)
  - Pain in extremity [Recovering/Resolving]
  - Deafness unilateral [Recovering/Resolving]
  - Deafness transitory [Recovering/Resolving]
  - Hypoaesthesia [Recovering/Resolving]
  - Somnolence [Recovering/Resolving]
  - Pain in jaw [Recovering/Resolving]
  - Influenza like illness [Recovering/Resolving]
  - Asthenia [Recovering/Resolving]
  - Diarrhoea [Recovering/Resolving]
  - Gastrointestinal pain [Recovering/Resolving]
  - Paraesthesia [Recovering/Resolving]
